FAERS Safety Report 4503643-X (Version None)
Quarter: 2004Q4

REPORT INFORMATION
  Report Type: 
  Country: None (occurrence: None)
  Receive Date: 20041115
  Receipt Date: 20041103
  Transmission Date: 20050328
  Serious: Yes (Death)
  Sender: FDA-Public Use
  Company Number: 25574

PATIENT
  Age: 5 Month
  Sex: Female

DRUGS (7)
  1. FLECAINIDE ACETATE [Suspect]
     Indication: SUPRAVENTRICULAR TACHYCARDIA
     Dosage: 15 MG (5 MG, 3 IN 1 DAY(S),ORAL
     Route: 048
     Dates: start: 20040930, end: 20040930
  2. FLECAINIDE ACETATE [Suspect]
     Indication: SUPRAVENTRICULAR TACHYCARDIA
     Dosage: 15 MG (5 MG, 3 IN 1 DAY(S),ORAL
     Route: 048
     Dates: start: 20040701
  3. FLECAINIDE ACETATE [Suspect]
     Indication: SUPRAVENTRICULAR TACHYCARDIA
     Dosage: 5 MG, INTRAVENOUS
     Route: 042
     Dates: start: 20040930, end: 20040930
  4. PROPRANOLOL [Suspect]
     Indication: SUPRAVENTRICULAR TACHYCARDIA
     Dosage: 3 MG (3 MG, 1 IN 1 DAY(S)), INTRAVENOUS
     Route: 042
     Dates: start: 20040930, end: 20040930
  5. CORGARD [Suspect]
     Indication: SUPRAVENTRICULAR TACHYCARDIA
     Dosage: 16 MG (8 MG, 2 IN 1 DAY(S), ORAL
     Route: 048
     Dates: start: 20040701, end: 20040930
  6. CORDARONE [Suspect]
     Indication: SUPRAVENTRICULAR TACHYCARDIA
     Dosage: 60 MG (60 MG, 1 IN 1 DAY(S), ORAL
     Route: 048
     Dates: start: 20040701, end: 20040930
  7. LASILIX [Concomitant]

REACTIONS (4)
  - BRADYCARDIA [None]
  - DRUG LEVEL INCREASED [None]
  - ELECTROMECHANICAL DISSOCIATION [None]
  - THERAPY NON-RESPONDER [None]
